FAERS Safety Report 14413496 (Version 1)
Quarter: 2018Q1

REPORT INFORMATION
  Report Type: Spontaneous
  Country: IT (occurrence: IT)
  Receive Date: 20180119
  Receipt Date: 20180119
  Transmission Date: 20180509
  Serious: Yes (Hospitalization, Other)
  Sender: FDA-Public Use
  Company Number: IT-ABBVIE-17P-083-1841495-00

PATIENT
  Age: 36 Year
  Sex: Male

DRUGS (3)
  1. LAMOTRIGINE. [Interacting]
     Active Substance: LAMOTRIGINE
     Indication: SEIZURE
     Route: 065
  2. LAMOTRIGINE. [Interacting]
     Active Substance: LAMOTRIGINE
     Route: 065
  3. VALPROIC ACID. [Suspect]
     Active Substance: VALPROIC ACID
     Indication: SEIZURE
     Route: 065

REACTIONS (10)
  - Focal dyscognitive seizures [Unknown]
  - Drug interaction [Unknown]
  - Automatism [Unknown]
  - Confusional state [Unknown]
  - Toxicity to various agents [Unknown]
  - Therapeutic response decreased [Unknown]
  - Myoclonus [Unknown]
  - Somnolence [Unknown]
  - Drug resistance [Unknown]
  - Drug level above therapeutic [Unknown]
